FAERS Safety Report 21847873 (Version 1)
Quarter: 2023Q1

REPORT INFORMATION
  Report Type: Spontaneous
  Country: IL (occurrence: IL)
  Receive Date: 20230111
  Receipt Date: 20230111
  Transmission Date: 20230417
  Serious: Yes (Other)
  Sender: FDA-Public Use
  Company Number: IL-TEVAIL-2023-IL-2843598

PATIENT
  Age: 16 Year
  Sex: Female

DRUGS (2)
  1. CLONAZEPAM [Suspect]
     Active Substance: CLONAZEPAM
     Indication: Product used for unknown indication
     Route: 065
     Dates: start: 2011
  2. CLONAZEPAM [Suspect]
     Active Substance: CLONAZEPAM
     Dosage: 1.25 MG IN THE MORNING AND 0.5 MG IN THE AFTERNOON AND EVENING
     Route: 065

REACTIONS (3)
  - Resuscitation [Unknown]
  - Deep brain stimulation [Unknown]
  - Product availability issue [Unknown]

NARRATIVE: CASE EVENT DATE: 20221001
